FAERS Safety Report 13422477 (Version 1)
Quarter: 2017Q2

REPORT INFORMATION
  Report Type: Spontaneous
  Country: IT (occurrence: IT)
  Receive Date: 20170410
  Receipt Date: 20170410
  Transmission Date: 20170830
  Serious: Yes (Hospitalization, Other)
  Sender: FDA-Public Use
  Company Number: IT-GLAXOSMITHKLINE-IT2017GSK046944

PATIENT
  Age: 41 Year
  Sex: Female

DRUGS (2)
  1. LAMICTAL [Suspect]
     Active Substance: LAMOTRIGINE
     Indication: HEADACHE
     Dosage: UNK
     Route: 048
     Dates: start: 20170322, end: 20170322
  2. CLARITHROMYCIN. [Suspect]
     Active Substance: CLARITHROMYCIN

REACTIONS (10)
  - Blister [Not Recovered/Not Resolved]
  - Excoriation [Not Recovered/Not Resolved]
  - Rash papular [Not Recovered/Not Resolved]
  - Conjunctival hyperaemia [Not Recovered/Not Resolved]
  - Stevens-Johnson syndrome [Not Recovered/Not Resolved]
  - Rash macular [Not Recovered/Not Resolved]
  - Strawberry tongue [Not Recovered/Not Resolved]
  - Rash erythematous [Not Recovered/Not Resolved]
  - Condition aggravated [Not Recovered/Not Resolved]
  - Off label use [Unknown]

NARRATIVE: CASE EVENT DATE: 20170322
